FAERS Safety Report 20020759 (Version 1)
Quarter: 2021Q4

REPORT INFORMATION
  Report Type: Spontaneous
  Country: AU (occurrence: AU)
  Receive Date: 20211101
  Receipt Date: 20211101
  Transmission Date: 20220303
  Serious: Yes (Other)
  Sender: FDA-Public Use
  Company Number: AU-NOVARTISPH-NVSC2021AU139061

PATIENT
  Sex: Male

DRUGS (7)
  1. LUCENTIS [Suspect]
     Active Substance: RANIBIZUMAB
     Indication: Product used for unknown indication
     Route: 065
  2. BEOVU [Suspect]
     Active Substance: BROLUCIZUMAB-DBLL
     Indication: Product used for unknown indication
     Dosage: UNK, Q3W
     Route: 065
     Dates: start: 202102
  3. BEOVU [Suspect]
     Active Substance: BROLUCIZUMAB-DBLL
     Dosage: UNK, Q3W
     Route: 065
  4. BEOVU [Suspect]
     Active Substance: BROLUCIZUMAB-DBLL
     Dosage: UNK, Q3W
     Route: 065
  5. BEOVU [Suspect]
     Active Substance: BROLUCIZUMAB-DBLL
     Dosage: UNK, Q3W
     Route: 065
  6. BEOVU [Suspect]
     Active Substance: BROLUCIZUMAB-DBLL
     Dosage: UNK, Q3W
     Route: 065
  7. BEOVU [Suspect]
     Active Substance: BROLUCIZUMAB-DBLL
     Dosage: UNK, Q3W
     Route: 065

REACTIONS (5)
  - Vitritis [Unknown]
  - Retinal haemorrhage [Unknown]
  - Ocular vascular disorder [Unknown]
  - Inappropriate schedule of product administration [Unknown]
  - Vitreous floaters [Unknown]
